FAERS Safety Report 7409592-1 (Version None)
Quarter: 2011Q2

REPORT INFORMATION
  Report Type: 
  Country: None (occurrence: None)
  Receive Date: 20110412
  Receipt Date: 20110321
  Transmission Date: 20111010
  Serious: Yes (Other)
  Sender: FDA-Public Use
  Company Number: US-BAYER-201030277NA

PATIENT
  Age: 32 Year
  Sex: Female
  Weight: 73.651 kg

DRUGS (4)
  1. DARVOCET-N 50 [Concomitant]
     Indication: PAIN
     Dosage: 1 TAB EVERY 4 HRS
  2. YAZ [Suspect]
     Indication: ACNE
     Dosage: 1 TAB
     Route: 048
     Dates: start: 20100218, end: 20100430
  3. ASPIRIN [Concomitant]
     Dosage: 325 MG, UNK
     Dates: start: 20100430
  4. NITROGLYCERIN [Concomitant]
     Dosage: 0.4 MG, UNK
     Dates: start: 20100430

REACTIONS (1)
  - PULMONARY EMBOLISM [None]
